FAERS Safety Report 17273774 (Version 1)
Quarter: 2020Q1

REPORT INFORMATION
  Report Type: Spontaneous
  Country: US (occurrence: US)
  Receive Date: 20200115
  Receipt Date: 20200115
  Transmission Date: 20200409
  Serious: No
  Sender: FDA-Public Use
  Company Number: US-PERRIGO-19US009274

PATIENT
  Age: 57 Year
  Sex: Female
  Weight: 72.56 kg

DRUGS (4)
  1. IBUPROFEN. [Suspect]
     Active Substance: IBUPROFEN
     Indication: SINUS HEADACHE
     Dosage: 200 MG, QD TO BID PRN
     Route: 048
     Dates: start: 2015
  2. HYDROCODONE [Concomitant]
     Active Substance: HYDROCODONE
     Indication: PAIN
     Dosage: UNK, PRN
     Route: 065
  3. IBUPROFEN. [Suspect]
     Active Substance: IBUPROFEN
     Indication: SINUS HEADACHE
     Dosage: 200 MG, QD TO BID PRN
     Route: 048
     Dates: start: 2015
  4. ANALGESICS [Concomitant]
     Active Substance: UNSPECIFIED INGREDIENT
     Indication: PAIN
     Dosage: UNKNOWN, FOR 1 WEEK
     Route: 065
     Dates: start: 2019, end: 2019

REACTIONS (2)
  - Drug screen positive [Recovered/Resolved]
  - Expired product administered [Unknown]

NARRATIVE: CASE EVENT DATE: 201704
